FAERS Safety Report 10397545 (Version 2)
Quarter: 2014Q3

REPORT INFORMATION
  Report Type: Spontaneous
  Country: US (occurrence: None)
  Receive Date: 20130815
  Receipt Date: 20140815
  Transmission Date: 20150326
  Serious: Yes (Other)
  Sender: FDA-Public Use
  Company Number: ADR-2013-00823

PATIENT
  Sex: Male

DRUGS (2)
  1. LIORESAL [Suspect]
     Active Substance: BACLOFEN
     Indication: MUSCLE SPASTICITY
     Dosage: 580 MCG/ML?SEE ALSO B5
  2. UNSPECIFIED ORAL MEDICATION [Suspect]
     Active Substance: UNSPECIFIED INGREDIENT

REACTIONS (6)
  - Fatigue [None]
  - Therapeutic response decreased [None]
  - Pain [None]
  - Neuralgia [None]
  - Musculoskeletal stiffness [None]
  - Muscle spasticity [None]
